FAERS Safety Report 17873221 (Version 1)
Quarter: 2020Q2

REPORT INFORMATION
  Report Type: Spontaneous
  Country: US (occurrence: US)
  Receive Date: 20200608
  Receipt Date: 20200608
  Transmission Date: 20200714
  Serious: Yes (Other)
  Sender: FDA-Public Use
  Company Number: US-OSMOTICA_PHARMACEUTICAL_US_LLC-POI0573202000309

PATIENT
  Age: 68 Year
  Sex: Female

DRUGS (1)
  1. OSMOLEX ER [Suspect]
     Active Substance: AMANTADINE
     Indication: PRODUCT USED FOR UNKNOWN INDICATION
     Dosage: ONE 129 MG AND ONE 193 MG TABLETS
     Dates: start: 2020

REACTIONS (2)
  - Hallucination [Unknown]
  - Insomnia [Unknown]

NARRATIVE: CASE EVENT DATE: 202004
